FAERS Safety Report 4705592-0 (Version None)
Quarter: 2005Q3

REPORT INFORMATION
  Report Type: 
  Country: None (occurrence: None)
  Receive Date: 20050701
  Receipt Date: 20050623
  Transmission Date: 20060218
  Serious: Yes (Other)
  Sender: FDA-Public Use
  Company Number: FR-ABBOTT-05P-056-0304002-00

PATIENT
  Sex: Male

DRUGS (2)
  1. MICROPAKINE [Suspect]
     Indication: PARTIAL SEIZURES
     Route: 048
     Dates: start: 20050401, end: 20050501
  2. MICROPAKINE [Suspect]
     Route: 048
     Dates: start: 20050501

REACTIONS (2)
  - CEREBRAL HAEMORRHAGE [None]
  - EPILEPSY [None]
